FAERS Safety Report 26158743 (Version 2)
Quarter: 2025Q4

REPORT INFORMATION
  Report Type: Report from Study
  Country: US (occurrence: US)
  Receive Date: 20251215
  Receipt Date: 20251231
  Transmission Date: 20260117
  Serious: Yes (Disabling)
  Sender: MALLINCKRODT
  Company Number: US-MALLINCKRODT-MNK202507688

PATIENT
  Age: 64 Year
  Sex: Male

DRUGS (3)
  1. CORTICOTROPIN [Suspect]
     Active Substance: CORTICOTROPIN
     Indication: Nephritic syndrome
     Route: 058
     Dates: start: 202512, end: 20251214
  2. CORTICOTROPIN [Suspect]
     Active Substance: CORTICOTROPIN
     Indication: Nephritic syndrome
  3. CORTICOTROPIN [Suspect]
     Active Substance: CORTICOTROPIN
     Indication: Haematuria

REACTIONS (2)
  - Disability [Unknown]
  - Product use in unapproved indication [Unknown]
